FAERS Safety Report 9897988 (Version 2)
Quarter: 2014Q1

REPORT INFORMATION
  Report Type: Spontaneous
  Country: US (occurrence: US)
  Receive Date: 20140214
  Receipt Date: 20140324
  Transmission Date: 20141002
  Serious: No
  Sender: FDA-Public Use
  Company Number: US-PFIZER INC-2014042786

PATIENT
  Age: 79 Year
  Sex: Male
  Weight: 90.7 kg

DRUGS (2)
  1. LIPITOR [Suspect]
     Indication: BLOOD CHOLESTEROL INCREASED
     Dosage: 10 MG, DAILY
  2. SERTRALINE [Concomitant]
     Dosage: 200 MG, DAILY

REACTIONS (3)
  - Amnesia [Unknown]
  - Memory impairment [Unknown]
  - Confusional state [Unknown]
